FAERS Safety Report 25709005 (Version 1)
Quarter: 2025Q3

REPORT INFORMATION
  Report Type: Spontaneous
  Country: CA (occurrence: CA)
  Receive Date: 20250821
  Receipt Date: 20250821
  Transmission Date: 20251021
  Serious: Yes (Other)
  Sender: CELLTRION
  Company Number: CA-CELLTRION INC.-2025CA028264

PATIENT

DRUGS (5)
  1. INFLIXIMAB [Suspect]
     Active Substance: INFLIXIMAB
     Indication: Crohn^s disease
  2. BENADRYL [Concomitant]
     Active Substance: DIPHENHYDRAMINE HYDROCHLORIDE
  3. GRAVOL [Concomitant]
     Active Substance: DIMENHYDRINATE
  4. HYDROCORTISONE [Concomitant]
     Active Substance: HYDROCORTISONE
  5. TYLENOL [Concomitant]
     Active Substance: ACETAMINOPHEN

REACTIONS (10)
  - Cold sweat [Unknown]
  - Back pain [Unknown]
  - Cyanosis [Unknown]
  - Dizziness [Unknown]
  - Headache [Unknown]
  - Hypotension [Unknown]
  - Nausea [Unknown]
  - Pruritus [Unknown]
  - Urticaria [Unknown]
  - Underdose [Unknown]
